FAERS Safety Report 4576242-1 (Version None)
Quarter: 2005Q1

REPORT INFORMATION
  Report Type: 
  Country: None (occurrence: None)
  Receive Date: 20050207
  Receipt Date: 20050126
  Transmission Date: 20050727
  Serious: Yes (Death)
  Sender: FDA-Public Use
  Company Number: 2005PL000004

PATIENT
  Age: 27 Year
  Sex: Male

DRUGS (3)
  1. AZATHIOPRINE [Suspect]
     Indication: COLITIS ULCERATIVE
     Dosage: 50 MG, DAILY, ORAL
     Route: 048
     Dates: start: 20001001, end: 20010501
  2. SULFASALAZINE [Concomitant]
  3. PREDNISOLONE [Concomitant]

REACTIONS (5)
  - COLON CANCER METASTATIC [None]
  - LARGE INTESTINE PERFORATION [None]
  - METASTASES TO BONE [None]
  - METASTASES TO LIVER [None]
  - METASTASES TO LUNG [None]
